FAERS Safety Report 18306043 (Version 1)
Quarter: 2020Q3

REPORT INFORMATION
  Report Type: Spontaneous
  Country: US (occurrence: US)
  Receive Date: 20200924
  Receipt Date: 20200924
  Transmission Date: 20201103
  Serious: No
  Sender: FDA-Public Use
  Company Number: US-GLAXOSMITHKLINE-US2020AMR185960

PATIENT
  Sex: Female
  Weight: 103.87 kg

DRUGS (1)
  1. VALACYCLOVIR [Suspect]
     Active Substance: VALACYCLOVIR HYDROCHLORIDE
     Indication: HERPES ZOSTER
     Dosage: 1 DF, QID

REACTIONS (4)
  - Drug ineffective [Unknown]
  - Burning sensation [Unknown]
  - Insomnia [Unknown]
  - Pain [Unknown]
